FAERS Safety Report 11688398 (Version 10)
Quarter: 2017Q2

REPORT INFORMATION
  Report Type: Spontaneous
  Country: US (occurrence: US)
  Receive Date: 20151101
  Receipt Date: 20170410
  Transmission Date: 20170829
  Serious: Yes (Congenital Anomaly, Other)
  Sender: FDA-Public Use
  Company Number: PHEH2015US022085

PATIENT
  Sex: Male

DRUGS (2)
  1. ZOFRAN ODT [Suspect]
     Active Substance: ONDANSETRON HYDROCHLORIDE
     Indication: FOETAL EXPOSURE DURING PREGNANCY
     Dosage: MOTHER DOSE: 8 MG, BID
     Route: 064
  2. ONDANSETRON HYDROCHLORIDE. [Suspect]
     Active Substance: ONDANSETRON HYDROCHLORIDE
     Indication: FOETAL EXPOSURE DURING PREGNANCY
     Route: 064

REACTIONS (29)
  - Right ventricle outflow tract obstruction [Unknown]
  - Staphylococcal infection [Unknown]
  - Emotional distress [Unknown]
  - Abscess [Unknown]
  - Keratosis pilaris [Unknown]
  - Erythema [Unknown]
  - Congenital anomaly [Unknown]
  - Pulmonary valve stenosis congenital [Unknown]
  - Pulmonary valve incompetence [Unknown]
  - Heart disease congenital [Unknown]
  - Ventricular septal defect [Unknown]
  - Galactosaemia [Unknown]
  - Congenital cardiovascular anomaly [Unknown]
  - Cardiac murmur [Unknown]
  - Injury [Unknown]
  - Hypertrophic cardiomyopathy [Unknown]
  - Congenital hydronephrosis [Unknown]
  - Cellulitis [Unknown]
  - Eczema [Unknown]
  - Transposition of the great vessels [Unknown]
  - Pain [Unknown]
  - Anhedonia [Unknown]
  - Congenital aortic stenosis [Unknown]
  - Atrioventricular block complete [Unknown]
  - Foetal exposure during pregnancy [Unknown]
  - Upper respiratory tract infection [Unknown]
  - Skin lesion [Unknown]
  - Rash [Unknown]
  - Anxiety [Unknown]
